FAERS Safety Report 11820187 (Version 1)
Quarter: 2015Q4

REPORT INFORMATION
  Report Type: Spontaneous
  Country: US (occurrence: None)
  Receive Date: 20151209
  Receipt Date: 20151209
  Transmission Date: 20160305
  Serious: Yes (Other)
  Sender: FDA-Public Use
  Company Number: None

PATIENT
  Age: 41 Year
  Sex: Female
  Weight: 41.73 kg

DRUGS (3)
  1. ADDERALL GENERIC 15 MG CORE [Suspect]
     Active Substance: AMPHETAMINE ASPARTATE\AMPHETAMINE SULFATE\DEXTROAMPHETAMINE SACCHARATE\DEXTROAMPHETAMINE SULFATE
     Indication: ATTENTION DEFICIT/HYPERACTIVITY DISORDER
     Dosage: 1 PILL
     Route: 048
     Dates: start: 20150824, end: 20151124
  2. TOPAMAX [Concomitant]
     Active Substance: TOPIRAMATE
  3. ADDERALL GENERIC 15 MG CORE [Suspect]
     Active Substance: AMPHETAMINE ASPARTATE\AMPHETAMINE SULFATE\DEXTROAMPHETAMINE SACCHARATE\DEXTROAMPHETAMINE SULFATE
     Indication: POST-TRAUMATIC STRESS DISORDER
     Dosage: 1 PILL
     Route: 048
     Dates: start: 20150824, end: 20151124

REACTIONS (6)
  - Condition aggravated [None]
  - Cognitive disorder [None]
  - Depression [None]
  - Product substitution issue [None]
  - Post-traumatic stress disorder [None]
  - Unevaluable event [None]

NARRATIVE: CASE EVENT DATE: 20150909
